FAERS Safety Report 16803216 (Version 3)
Quarter: 2019Q4

REPORT INFORMATION
  Report Type: Report from Study
  Country: None (occurrence: NL)
  Receive Date: 20190913
  Receipt Date: 20191015
  Transmission Date: 20200122
  Serious: Yes (Hospitalization)
  Sender: FDA-Public Use
  Company Number: NL-ABBVIE-19K-114-2916124-00

PATIENT
  Sex: Female

DRUGS (3)
  1. LEVODOPA/CARBIDOPA [Concomitant]
     Active Substance: CARBIDOPA\LEVODOPA
     Indication: PARKINSON^S DISEASE
     Route: 048
  2. MADOPAR DISPERSIBL [Concomitant]
     Active Substance: BENSERAZIDE HYDROCHLORIDE\LEVODOPA
     Indication: PARKINSON^S DISEASE
     Route: 048
  3. DUODOPA [Suspect]
     Active Substance: CARBIDOPA\LEVODOPA
     Indication: PARKINSON^S DISEASE
     Dosage: MD 13.0 CD 5.0 ED 3.0
     Route: 050
     Dates: start: 20190624

REACTIONS (16)
  - Decreased appetite [Recovering/Resolving]
  - Memory impairment [Unknown]
  - Asthenia [Recovering/Resolving]
  - Vomiting [Not Recovered/Not Resolved]
  - Freezing phenomenon [Not Recovered/Not Resolved]
  - Musculoskeletal stiffness [Unknown]
  - Nocturia [Unknown]
  - Weight decreased [Recovering/Resolving]
  - Stress [Unknown]
  - Nausea [Not Recovered/Not Resolved]
  - Hallucination [Recovering/Resolving]
  - Dyskinesia [Recovering/Resolving]
  - Fluid intake reduced [Recovering/Resolving]
  - Pain in extremity [Unknown]
  - Speech disorder [Unknown]
  - Loss of personal independence in daily activities [Unknown]

NARRATIVE: CASE EVENT DATE: 2019
